FAERS Safety Report 4985090-X (Version None)
Quarter: 2006Q2

REPORT INFORMATION
  Report Type: 
  Country: None (occurrence: None)
  Receive Date: 20060419
  Receipt Date: 20060413
  Transmission Date: 20061013
  Serious: Yes (Death)
  Sender: FDA-Public Use
  Company Number: FRWYE557113APR06

PATIENT
  Age: 77 Year
  Sex: Female

DRUGS (1)
  1. EFFEXOR [Suspect]
     Dosage: ORAL
     Route: 048

REACTIONS (2)
  - HYPONATRAEMIA [None]
  - HYPOTENSION [None]
